FAERS Safety Report 6288654-9 (Version None)
Quarter: 2009Q3

REPORT INFORMATION
  Report Type: 
  Country: None (occurrence: None)
  Receive Date: 20090729
  Receipt Date: 20090720
  Transmission Date: 20100115
  Serious: Yes (Hospitalization, Other)
  Sender: FDA-Public Use
  Company Number: US-MERCK-00042104

PATIENT
  Age: 58 Year
  Sex: Male
  Weight: 81 kg

DRUGS (16)
  1. FOSAMAX [Suspect]
     Indication: OSTEOPOROSIS
     Route: 048
     Dates: end: 20000531
  2. FOSAMAX [Suspect]
     Route: 048
     Dates: start: 20020101
  3. FOSAMAX [Suspect]
     Route: 048
  4. FOSAMAX [Suspect]
     Route: 048
     Dates: start: 19970101
  5. FOSAMAX [Suspect]
     Route: 048
     Dates: start: 19950101, end: 20070101
  6. FOSAMAX [Suspect]
     Indication: FRACTURE
     Route: 048
     Dates: end: 20000531
  7. FOSAMAX [Suspect]
     Route: 048
     Dates: start: 20020101
  8. FOSAMAX [Suspect]
     Route: 048
  9. FOSAMAX [Suspect]
     Route: 048
     Dates: start: 19970101
  10. FOSAMAX [Suspect]
     Route: 048
     Dates: start: 19950101, end: 20070101
  11. PREDNISONE [Concomitant]
     Route: 065
  12. MEDROL [Concomitant]
     Indication: PEMPHIGUS
     Route: 065
     Dates: start: 19940101
  13. IMURAN [Concomitant]
     Indication: PEMPHIGUS
     Route: 065
     Dates: start: 19940101, end: 20070101
  14. PERCOCET [Concomitant]
     Indication: PAIN
     Route: 065
     Dates: start: 19950101
  15. ANTIMICROBIAL (UNSPECIFIED) [Concomitant]
     Route: 065
  16. ANDRODERM [Concomitant]
     Route: 065
     Dates: start: 19950101

REACTIONS (26)
  - ABDOMINAL DISTENSION [None]
  - ADVERSE EVENT [None]
  - BODY HEIGHT DECREASED [None]
  - BONE PAIN [None]
  - CELLULITIS [None]
  - DEHYDRATION [None]
  - DENTAL CARIES [None]
  - DRUG ADMINISTRATION ERROR [None]
  - DYSGEUSIA [None]
  - FAILURE TO THRIVE [None]
  - GLUCOSE TOLERANCE IMPAIRED [None]
  - HYPERTENSION [None]
  - INFECTION [None]
  - IRON DEFICIENCY ANAEMIA [None]
  - OEDEMA [None]
  - OSTEONECROSIS [None]
  - PEMPHIGUS [None]
  - PERIODONTAL DISEASE [None]
  - SENSATION OF PRESSURE [None]
  - SINUSITIS [None]
  - SPINAL FRACTURE [None]
  - TACHYCARDIA [None]
  - TOOTH ABSCESS [None]
  - ULCER [None]
  - WEIGHT DECREASED [None]
  - WHEEZING [None]
